FAERS Safety Report 16212482 (Version 6)
Quarter: 2021Q4

REPORT INFORMATION
  Report Type: Spontaneous
  Country: US (occurrence: US)
  Receive Date: 20190418
  Receipt Date: 20211008
  Transmission Date: 20220303
  Serious: No
  Sender: FDA-Public Use
  Company Number: US-PFIZER INC-2017518413

PATIENT
  Age: 46 Year
  Sex: Female
  Weight: 100 kg

DRUGS (21)
  1. LYRICA [Suspect]
     Active Substance: PREGABALIN
     Indication: Fibromyalgia
     Dosage: 1 DF, UNK
     Route: 048
  2. LYRICA [Suspect]
     Active Substance: PREGABALIN
     Indication: Head injury
     Dosage: 5 TIMES A DAY
     Route: 048
     Dates: start: 2004
  3. LYRICA [Suspect]
     Active Substance: PREGABALIN
     Indication: Neuralgia
     Dosage: 50 MG, 2X/DAY
     Route: 048
     Dates: start: 2004, end: 2004
  4. LYRICA [Suspect]
     Active Substance: PREGABALIN
     Indication: Seizure
     Dosage: 50 MG, 2X/DAY
     Dates: start: 200412
  5. LYRICA [Suspect]
     Active Substance: PREGABALIN
     Indication: Nerve block
     Dosage: 50 MG, 2X/DAY
     Route: 048
     Dates: start: 2005
  6. ATORVASTATIN [Concomitant]
     Active Substance: ATORVASTATIN
     Indication: Blood cholesterol abnormal
     Dosage: 10 MG, 1X/DAY [ONE TABLET AT BEDTIME ]
     Dates: start: 2017
  7. CITALOPRAM [Concomitant]
     Active Substance: CITALOPRAM HYDROBROMIDE
     Indication: Depression
     Dosage: 20 MG, 1X/DAY [AT BREAKFAST ]
     Dates: start: 2004
  8. CITALOPRAM [Concomitant]
     Active Substance: CITALOPRAM HYDROBROMIDE
     Indication: Panic attack
  9. METFORMIN [Concomitant]
     Active Substance: METFORMIN HYDROCHLORIDE
     Indication: Blood glucose increased
     Dosage: 1 DF, 2X/DAY
     Dates: start: 2005
  10. METFORMIN [Concomitant]
     Active Substance: METFORMIN HYDROCHLORIDE
     Indication: Diabetes mellitus
     Dosage: 1000 MG, 2X/DAY
  11. METOPROLOL TARTRATE [Concomitant]
     Active Substance: METOPROLOL TARTRATE
     Indication: Blood pressure abnormal
     Dosage: 50 MG, 2X/DAY
     Dates: start: 2005
  12. METOPROLOL TARTRATE [Concomitant]
     Active Substance: METOPROLOL TARTRATE
     Indication: Diabetes mellitus
  13. METOPROLOL TARTRATE [Concomitant]
     Active Substance: METOPROLOL TARTRATE
     Indication: Myocardial infarction
  14. METOPROLOL TARTRATE [Concomitant]
     Active Substance: METOPROLOL TARTRATE
     Indication: Cerebrovascular accident
  15. OMEPRAZOLE [Concomitant]
     Active Substance: OMEPRAZOLE
     Indication: Gastrooesophageal reflux disease
     Dosage: 20 MG, 1X/DAY [ONE CAPSULE EVERY MORNING ]
     Dates: start: 2005
  16. OMEPRAZOLE [Concomitant]
     Active Substance: OMEPRAZOLE
     Indication: Duodenal ulcer
  17. PIOGLITAZONE [Concomitant]
     Active Substance: PIOGLITAZONE
     Indication: Glycosylated haemoglobin increased
     Dosage: 30 MG, 1X/DAY [ONE AT BEDTIME ]
     Dates: start: 2016
  18. VICTOZA [Concomitant]
     Active Substance: LIRAGLUTIDE
     Indication: Glycosylated haemoglobin increased
     Dosage: 1.2 ML, 1X/DAY [INJECT 1.2 ML IN THE MORNING ]
     Dates: start: 2007
  19. VICTOZA [Concomitant]
     Active Substance: LIRAGLUTIDE
     Indication: Diabetes mellitus
  20. SUCRALFATE [Concomitant]
     Active Substance: SUCRALFATE
     Indication: Gastric ulcer
     Dosage: 1 MG, 2X/DAY
     Dates: start: 2005
  21. ASPIRIN [Concomitant]
     Active Substance: ASPIRIN
     Indication: Anticoagulant therapy
     Dosage: 81 MG, 1X/DAY [IN MORNING ]
     Dates: start: 2016

REACTIONS (13)
  - Dizziness [Not Recovered/Not Resolved]
  - Balance disorder [Not Recovered/Not Resolved]
  - Head discomfort [Recovering/Resolving]
  - Loss of personal independence in daily activities [Unknown]
  - Withdrawal syndrome [Not Recovered/Not Resolved]
  - Hot flush [Unknown]
  - Confusional state [Unknown]
  - Mood altered [Unknown]
  - Abdominal discomfort [Unknown]
  - Pain [Unknown]
  - Intentional product use issue [Unknown]
  - Off label use [Unknown]
  - Product use issue [Unknown]

NARRATIVE: CASE EVENT DATE: 20040101
